FAERS Safety Report 6449486-1 (Version None)
Quarter: 2009Q4

REPORT INFORMATION
  Report Type: 
  Country: None (occurrence: None)
  Receive Date: 20091120
  Receipt Date: 20091109
  Transmission Date: 20100525
  Serious: Yes (Other)
  Sender: FDA-Public Use
  Company Number: US-ELI_LILLY_AND_COMPANY-US200911002456

PATIENT
  Age: 53 Year
  Sex: Male

DRUGS (3)
  1. CYMBALTA [Suspect]
     Dosage: 60 MG, UNKNOWN
     Route: 065
     Dates: start: 20060101, end: 20090801
  2. ELAVIL [Concomitant]
     Dosage: UNK, UNKNOWN
     Route: 065
  3. KLONOPIN [Concomitant]
     Dosage: UNK, UNKNOWN
     Route: 065

REACTIONS (5)
  - CARDIAC DISORDER [None]
  - DRUG WITHDRAWAL SYNDROME [None]
  - LUNG DISORDER [None]
  - MENTAL DISORDER [None]
  - PULMONARY EMBOLISM [None]
